FAERS Safety Report 11071866 (Version 2)
Quarter: 2015Q2

REPORT INFORMATION
  Report Type: Report from Study
  Country: US (occurrence: US)
  Receive Date: 20150428
  Receipt Date: 20150501
  Transmission Date: 20150821
  Serious: Yes (Hospitalization)
  Sender: FDA-Public Use
  Company Number: US-SA-2015SA051592

PATIENT
  Age: 51 Year
  Sex: Female

DRUGS (1)
  1. TOUJEO [Suspect]
     Active Substance: INSULIN GLARGINE
     Indication: DIABETES MELLITUS
     Dosage: ROUTE: INJECTION DOSE:60 UNIT(S)

REACTIONS (4)
  - Weight increased [Not Recovered/Not Resolved]
  - Diabetic ketoacidosis [Unknown]
  - Abdominal pain upper [Not Recovered/Not Resolved]
  - Drug administration error [Unknown]

NARRATIVE: CASE EVENT DATE: 20150416
